FAERS Safety Report 6423985-0 (Version None)
Quarter: 2009Q4

REPORT INFORMATION
  Report Type: 
  Country: None (occurrence: None)
  Receive Date: 20091102
  Receipt Date: 20091030
  Transmission Date: 20100525
  Serious: Yes (Death, Hospitalization, Other)
  Sender: FDA-Public Use
  Company Number: PHEH2009US09380

PATIENT
  Sex: Female

DRUGS (7)
  1. RECLAST [Suspect]
     Indication: OSTEOPOROSIS
     Dosage: UNK, UNK
     Route: 042
     Dates: start: 20090513
  2. LISINOPRIL [Concomitant]
     Dosage: 10 MG, QD
     Route: 048
  3. SPIRONOLACTONE [Concomitant]
     Dosage: 25 MG, QD
     Route: 048
  4. PLAVIX [Concomitant]
     Dosage: 25 MG, QD
     Route: 048
  5. LIPITOR [Concomitant]
     Dosage: 80 MG, QD
     Route: 048
  6. COUMADIN [Concomitant]
     Dosage: 5 MG, UNK
  7. DIPYRIDAMOLE [Concomitant]
     Dosage: 25 MG, UNK

REACTIONS (9)
  - ARTHRALGIA [None]
  - DEATH [None]
  - DEHYDRATION [None]
  - DIVERTICULUM [None]
  - GALLBLADDER DISORDER [None]
  - INFLUENZA LIKE ILLNESS [None]
  - PANCREATITIS [None]
  - RENAL FAILURE ACUTE [None]
  - URINE OUTPUT DECREASED [None]
